FAERS Safety Report 6394007-5 (Version None)
Quarter: 2009Q4

REPORT INFORMATION
  Report Type: 
  Country: None (occurrence: None)
  Receive Date: 20091008
  Receipt Date: 20090925
  Transmission Date: 20100525
  Serious: Yes (Other)
  Sender: FDA-Public Use
  Company Number: PHEH2007US08568

PATIENT
  Sex: Female

DRUGS (1)
  1. ELIDEL [Suspect]
     Indication: ECZEMA
     Route: 061
     Dates: start: 20040101

REACTIONS (25)
  - ABDOMINAL PAIN [None]
  - AMNESIA [None]
  - ANAEMIA [None]
  - ARTHRITIS [None]
  - ASTHMA [None]
  - CARDIAC MURMUR [None]
  - DIABETES MELLITUS [None]
  - DIZZINESS [None]
  - DRUG EXPOSURE DURING PREGNANCY [None]
  - DYSMENORRHOEA [None]
  - FATIGUE [None]
  - HEADACHE [None]
  - HODGKIN'S DISEASE [None]
  - HYPERLIPIDAEMIA [None]
  - HYPERTENSION [None]
  - HYPOTHYROIDISM [None]
  - LYMPHADENOPATHY [None]
  - MIGRAINE [None]
  - MYOCARDIAL INFARCTION [None]
  - NEUROPATHY PERIPHERAL [None]
  - OTITIS MEDIA [None]
  - SINUSITIS [None]
  - ULCER [None]
  - URINARY TRACT DISORDER [None]
  - VAGINAL HAEMORRHAGE [None]
